FAERS Safety Report 21171219 (Version 1)
Quarter: 2022Q3

REPORT INFORMATION
  Report Type: Spontaneous
  Country: US (occurrence: US)
  Receive Date: 20220804
  Receipt Date: 20220804
  Transmission Date: 20221027
  Serious: No
  Sender: FDA-Public Use
  Company Number: US-AMNEAL PHARMACEUTICALS-2021-AMRX-04401

PATIENT
  Sex: Female

DRUGS (1)
  1. METAXALONE [Suspect]
     Active Substance: METAXALONE
     Indication: Tremor
     Dosage: UNK
     Route: 065

REACTIONS (4)
  - Tremor [Unknown]
  - Inappropriate schedule of product administration [Unknown]
  - Product packaging difficult to open [Unknown]
  - Product use in unapproved indication [Unknown]
